FAERS Safety Report 5585071-1 (Version None)
Quarter: 2008Q1

REPORT INFORMATION
  Report Type: 
  Country: None (occurrence: None)
  Receive Date: 20080104
  Receipt Date: 20080104
  Transmission Date: 20080703
  Serious: Yes (Hospitalization)
  Sender: FDA-Public Use
  Company Number: None

PATIENT
  Sex: Male

DRUGS (3)
  1. OXYCODONE AND ACETAMINOPHEN [Suspect]
  2. ZOLPIDEM [Suspect]
  3. INHALED BRONCHODIALATORS [Concomitant]

REACTIONS (1)
  - HYPOXIA [None]
